FAERS Safety Report 25871711 (Version 1)
Quarter: 2025Q4

REPORT INFORMATION
  Report Type: Spontaneous
  Country: US (occurrence: US)
  Receive Date: 20251001
  Receipt Date: 20251001
  Transmission Date: 20260118
  Serious: No
  Sender: RECKITT BENCKISER
  Company Number: US-INDIVIOR US-INDV-166511-2025

PATIENT

DRUGS (3)
  1. SUBLOCADE [Suspect]
     Active Substance: BUPRENORPHINE
     Indication: Drug dependence
     Dosage: UNK, QMO
     Route: 065
  2. SUBLOCADE [Suspect]
     Active Substance: BUPRENORPHINE
  3. ALCOHOL (ALCOHOL) [Suspect]
     Active Substance: ALCOHOL
     Indication: Product used for unknown indication
     Dosage: UNK
     Route: 065

REACTIONS (1)
  - Alcohol problem [Not Recovered/Not Resolved]

NARRATIVE: CASE EVENT DATE: 20250101
